FAERS Safety Report 8464881-7 (Version None)
Quarter: 2012Q2

REPORT INFORMATION
  Report Type: 
  Country: None (occurrence: None)
  Receive Date: 20120626
  Receipt Date: 20120614
  Transmission Date: 20120825
  Serious: Yes (Hospitalization)
  Sender: FDA-Public Use
  Company Number: US-ELI_LILLY_AND_COMPANY-US201206005428

PATIENT
  Sex: Female

DRUGS (11)
  1. FUROSEMIDE [Concomitant]
  2. MUCOMYST [Concomitant]
  3. PENICILLIN V [Concomitant]
  4. LETAIRIS [Concomitant]
     Indication: PULMONARY HYPERTENSION
  5. ADCIRCA [Suspect]
  6. ASPIRIN [Concomitant]
     Dosage: UNK, UNKNOWN
  7. LISINOPRIL [Concomitant]
  8. QVAR 40 [Concomitant]
  9. PROTONIX [Concomitant]
  10. SOTALOL HYDROCHLORIDE [Concomitant]
  11. ALBUTEROL [Concomitant]
     Dosage: UNK, UNKNOWN

REACTIONS (2)
  - MENINGITIS [None]
  - HYPOTENSION [None]
